FAERS Safety Report 6120410-4 (Version None)
Quarter: 2009Q1

REPORT INFORMATION
  Report Type: 
  Country: None (occurrence: None)
  Receive Date: 20090316
  Receipt Date: 20090316
  Transmission Date: 20090719
  Serious: Yes (Disabling)
  Sender: FDA-Public Use
  Company Number: None

PATIENT
  Sex: Female
  Weight: 49.8957 kg

DRUGS (1)
  1. LORAZEPAM [Suspect]
     Dosage: 0.5 MG 1 OR 2 X DAY ORAL
     Route: 048
     Dates: start: 20060401, end: 20081201

REACTIONS (5)
  - ABASIA [None]
  - DYSPHAGIA [None]
  - DYSSTASIA [None]
  - FEEDING DISORDER [None]
  - INCOHERENT [None]
